FAERS Safety Report 4308554-0 (Version None)
Quarter: 2004Q1

REPORT INFORMATION
  Report Type: 
  Country: None (occurrence: None)
  Receive Date: 20040226
  Receipt Date: 20030826
  Transmission Date: 20041129
  Serious: Yes (Hospitalization)
  Sender: FDA-Public Use
  Company Number: 2003174393US

PATIENT
  Age: 71 Year
  Sex: Male

DRUGS (12)
  1. CELEBREX [Suspect]
     Indication: OSTEOARTHRITIS
     Dosage: 200 MG, QD, ORAL
     Route: 048
     Dates: start: 20021201, end: 20030101
  2. ZOLOFT [Concomitant]
  3. LIPITOR [Concomitant]
  4. INSULIN HUMULIN 70/30 (INSULIN HUMAN INJECTION, ISOPHANE, INSULIN HUMA [Concomitant]
  5. GLUCOPHAGE [Concomitant]
  6. COUMADIN [Concomitant]
  7. MONOPRIL [Concomitant]
  8. ZYPREXA [Concomitant]
  9. PREVACID [Concomitant]
  10. HYDROCHLOROTHIAZIDE [Concomitant]
  11. WELLBUTRIN [Concomitant]
  12. FLEXERIL [Concomitant]

REACTIONS (1)
  - ULCER HAEMORRHAGE [None]
